FAERS Safety Report 6468554-1 (Version None)
Quarter: 2009Q4

REPORT INFORMATION
  Report Type: 
  Country: None (occurrence: None)
  Receive Date: 20091203
  Receipt Date: 20091130
  Transmission Date: 20100525
  Serious: Yes (Hospitalization)
  Sender: FDA-Public Use
  Company Number: NL-ASTRAZENECA-2009SE29433

PATIENT
  Age: 61 Year
  Sex: Female

DRUGS (3)
  1. LOSEC [Suspect]
     Indication: DYSPEPSIA
  2. FUROSEMIDE [Concomitant]
  3. SPIRONOLACTONE [Concomitant]

REACTIONS (3)
  - HYPOMAGNESAEMIA [None]
  - NAUSEA [None]
  - VOMITING [None]
